FAERS Safety Report 15941229 (Version 3)
Quarter: 2019Q2

REPORT INFORMATION
  Report Type: Spontaneous
  Country: US (occurrence: US)
  Receive Date: 20190208
  Receipt Date: 20190405
  Transmission Date: 20190711
  Serious: Yes (Other)
  Sender: FDA-Public Use
  Company Number: US-ASTRAZENECA-2019SE12037

PATIENT
  Sex: Female
  Weight: 88.5 kg

DRUGS (22)
  1. PRILOSEC [Suspect]
     Active Substance: OMEPRAZOLE MAGNESIUM
     Indication: GASTROOESOPHAGEAL REFLUX DISEASE
     Route: 048
     Dates: start: 1997, end: 2016
  2. LORATADINE. [Concomitant]
     Active Substance: LORATADINE
  3. METOPROLOL. [Concomitant]
     Active Substance: METOPROLOL
     Dosage: FOR 2 YEARS
  4. TRAZODONE [Concomitant]
     Active Substance: TRAZODONE HYDROCHLORIDE
     Indication: ANTIDEPRESSANT THERAPY
     Dosage: FOR 2 YEARS
  5. LIPITOR [Concomitant]
     Active Substance: ATORVASTATIN CALCIUM
     Indication: MYALGIA
     Route: 048
     Dates: start: 20070702
  6. PLAVIX [Concomitant]
     Active Substance: CLOPIDOGREL BISULFATE
     Indication: MENTAL STATUS CHANGES
     Route: 048
     Dates: start: 20100615
  7. PERCOCET [Concomitant]
     Active Substance: ACETAMINOPHEN\OXYCODONE HYDROCHLORIDE
     Indication: VOMITING
     Route: 048
     Dates: start: 20120511
  8. ZITHROMAX [Concomitant]
     Active Substance: AZITHROMYCIN DIHYDRATE
     Indication: DIARRHOEA
     Route: 048
     Dates: start: 20140108
  9. LEVAQUIN [Concomitant]
     Active Substance: LEVOFLOXACIN
     Indication: DIARRHOEA
     Route: 048
     Dates: start: 20091117
  10. METHYLPREDNISOLONE. [Concomitant]
     Active Substance: METHYLPREDNISOLONE
     Indication: INFLAMMATION
     Dosage: FOR 2 YEARS
  11. ISOSORBIDE. [Concomitant]
     Active Substance: ISOSORBIDE
     Indication: ANGINA PECTORIS
     Dosage: FOR 2 YEARS
  12. PRILOSEC [Suspect]
     Active Substance: OMEPRAZOLE MAGNESIUM
     Indication: GASTROOESOPHAGEAL REFLUX DISEASE
     Route: 048
  13. BRILINTA [Concomitant]
     Active Substance: TICAGRELOR
     Dosage: FOR 2 YEARS
  14. FLUOROMETHOLONE. [Concomitant]
     Active Substance: FLUOROMETHOLONE
     Dosage: FOR 2 YEARS
  15. LEVOTHYROXINE. [Concomitant]
     Active Substance: LEVOTHYROXINE
     Indication: THYROID THERAPY
     Dosage: FOR 2 YEARS
  16. FLONASE [Concomitant]
     Active Substance: FLUTICASONE PROPIONATE
  17. PRILOSEC [Suspect]
     Active Substance: OMEPRAZOLE MAGNESIUM
     Indication: GASTROOESOPHAGEAL REFLUX DISEASE
     Dosage: GENERIC
     Route: 048
  18. PRILOSEC [Suspect]
     Active Substance: OMEPRAZOLE MAGNESIUM
     Indication: GASTROOESOPHAGEAL REFLUX DISEASE
     Route: 048
     Dates: start: 1995
  19. PREDNISONE. [Concomitant]
     Active Substance: PREDNISONE
     Indication: MUSCLE SPASMS
     Route: 048
     Dates: start: 20130924
  20. BENETHAMINE PENICILLIN [Concomitant]
     Active Substance: BENETHAMINE PENICILLIN
     Dates: start: 20151211
  21. GABAPENTIN. [Concomitant]
     Active Substance: GABAPENTIN
     Indication: HEADACHE
  22. RANITIDINE. [Concomitant]
     Active Substance: RANITIDINE

REACTIONS (3)
  - Chronic kidney disease [Not Recovered/Not Resolved]
  - Acute kidney injury [Unknown]
  - Renal failure [Unknown]
